FAERS Safety Report 11731790 (Version 1)
Quarter: 2015Q4

REPORT INFORMATION
  Report Type: Spontaneous
  Country: US (occurrence: US)
  Receive Date: 20151110
  Receipt Date: 20151110
  Transmission Date: 20160304
  Serious: No
  Sender: FDA-Public Use
  Company Number: US-ELI_LILLY_AND_COMPANY-US201110004456

PATIENT
  Age: 71 Year
  Sex: Female

DRUGS (3)
  1. NIASPAN [Concomitant]
     Active Substance: NIACIN
  2. FORTEO [Suspect]
     Active Substance: TERIPARATIDE
     Dosage: 20 UG, QD
  3. FORTEO [Suspect]
     Active Substance: TERIPARATIDE
     Indication: OSTEOPOROSIS
     Dosage: 20 UG, QD
     Route: 065
     Dates: start: 20111007

REACTIONS (7)
  - Feeling cold [Unknown]
  - Myalgia [Not Recovered/Not Resolved]
  - Cholelithiasis [Unknown]
  - Blood cholesterol increased [Unknown]
  - Nausea [Unknown]
  - Rash macular [Unknown]
  - Rash [Unknown]

NARRATIVE: CASE EVENT DATE: 20111007
